FAERS Safety Report 24665179 (Version 1)
Quarter: 2024Q4

REPORT INFORMATION
  Report Type: Report from Study
  Country: CA (occurrence: CA)
  Receive Date: 20241126
  Receipt Date: 20241126
  Transmission Date: 20250114
  Serious: Yes (Hospitalization, Other)
  Sender: TAKEDA
  Company Number: CA-TAKEDA-2024TUS118276

PATIENT
  Sex: Male

DRUGS (3)
  1. VEDOLIZUMAB [Suspect]
     Active Substance: VEDOLIZUMAB
     Indication: Colitis ulcerative
     Dosage: 300 MILLIGRAM
     Dates: start: 20210920, end: 20241003
  2. Cortiment [Concomitant]
     Dosage: 9 MILLIGRAM, QD
     Dates: start: 20210804
  3. Salofalk [Concomitant]
     Dosage: UNK UNK, QD
     Dates: start: 2018

REACTIONS (1)
  - Colitis ulcerative [Unknown]
